FAERS Safety Report 10060590 (Version 2)
Quarter: 2014Q2

REPORT INFORMATION
  Report Type: Spontaneous
  Country: GB (occurrence: GB)
  Receive Date: 20140404
  Receipt Date: 20140404
  Transmission Date: 20141212
  Serious: Yes (Other)
  Sender: FDA-Public Use
  Company Number: GB-BRISTOL-MYERS SQUIBB COMPANY-20553970

PATIENT
  Age: 42 Year
  Sex: Male

DRUGS (3)
  1. BYDUREON  2MG SUSPENSION [Suspect]
     Indication: DIABETES MELLITUS
     Dosage: 2-3 WEEKS AGO
     Route: 058
     Dates: start: 201403
  2. BYDUREON  2MG SUSPENSION [Suspect]
     Indication: WEIGHT DECREASED
     Dosage: 2-3 WEEKS AGO
     Route: 058
     Dates: start: 201403
  3. METFORMIN [Concomitant]
     Dosage: 1 DF: 1500
     Route: 048
     Dates: start: 2008

REACTIONS (1)
  - Tachycardia [Unknown]
